FAERS Safety Report 8341391-9 (Version None)
Quarter: 2012Q2

REPORT INFORMATION
  Report Type: 
  Country: None (occurrence: None)
  Receive Date: 20120507
  Receipt Date: 20100223
  Transmission Date: 20120825
  Serious: No
  Sender: FDA-Public Use
  Company Number: US-TEVA-2009029653

PATIENT
  Sex: Female
  Weight: 62.652 kg

DRUGS (1)
  1. TREANDA [Suspect]
     Indication: LYMPHOMA
     Route: 042
     Dates: start: 20090624, end: 20100105

REACTIONS (1)
  - INFUSION SITE EXTRAVASATION [None]
